FAERS Safety Report 21669246 (Version 1)
Quarter: 2022Q4

REPORT INFORMATION
  Report Type: Spontaneous
  Country: FI (occurrence: FI)
  Receive Date: 20221201
  Receipt Date: 20221201
  Transmission Date: 20230113
  Serious: Yes (Disabling)
  Sender: FDA-Public Use
  Company Number: None

PATIENT
  Age: 22 Year
  Sex: Female

DRUGS (1)
  1. DROSPIRENONE [Suspect]
     Active Substance: DROSPIRENONE
     Indication: Contraception
     Dosage: 1 DF, QD
     Route: 048
     Dates: start: 20160101, end: 20161001

REACTIONS (1)
  - Dyspareunia [Recovered/Resolved with Sequelae]

NARRATIVE: CASE EVENT DATE: 20160401
